FAERS Safety Report 5286859-7 (Version None)
Quarter: 2007Q1

REPORT INFORMATION
  Report Type: 
  Country: None (occurrence: None)
  Receive Date: 20070329
  Receipt Date: 20070315
  Transmission Date: 20070707
  Serious: Yes (Other)
  Sender: FDA-Public Use
  Company Number: B0427559A

PATIENT
  Age: 80 Year
  Sex: Male

DRUGS (5)
  1. SEREVENT [Suspect]
     Indication: CHRONIC OBSTRUCTIVE PULMONARY DISEASE
     Dosage: 50 MCG, TWICE PER DAY; INHALED
     Route: 055
     Dates: start: 20060403, end: 20060608
  2. THEOPHYLLINE [Concomitant]
  3. TIOTROPIUM [Concomitant]
  4. POVIDONE IODINE [Concomitant]
  5. TULOBUTEROL HYDROCHLORIDE [Concomitant]

REACTIONS (1)
  - HYPOKALAEMIA [None]
